FAERS Safety Report 13409013 (Version 3)
Quarter: 2017Q3

REPORT INFORMATION
  Report Type: Spontaneous
  Country: US (occurrence: US)
  Receive Date: 20170406
  Receipt Date: 20170920
  Transmission Date: 20171127
  Serious: No
  Sender: FDA-Public Use
  Company Number: US-JNJFOC-20170112735

PATIENT
  Age: 6 Year
  Sex: Male

DRUGS (38)
  1. RISPERDAL [Suspect]
     Active Substance: RISPERIDONE
     Indication: ATTENTION DEFICIT/HYPERACTIVITY DISORDER
     Route: 048
     Dates: start: 20141120, end: 20150605
  2. RISPERIDONE. [Suspect]
     Active Substance: RISPERIDONE
     Indication: ATTENTION DEFICIT/HYPERACTIVITY DISORDER
     Route: 065
  3. RISPERIDONE. [Suspect]
     Active Substance: RISPERIDONE
     Indication: ATTENTION DEFICIT/HYPERACTIVITY DISORDER
     Route: 065
     Dates: start: 20120807
  4. RISPERDAL [Suspect]
     Active Substance: RISPERIDONE
     Indication: DISTURBANCE IN SOCIAL BEHAVIOUR
     Route: 048
     Dates: start: 20070820, end: 20090512
  5. RISPERDAL [Suspect]
     Active Substance: RISPERIDONE
     Indication: ATTENTION DEFICIT/HYPERACTIVITY DISORDER
     Route: 048
  6. RISPERIDONE. [Suspect]
     Active Substance: RISPERIDONE
     Indication: DISTURBANCE IN SOCIAL BEHAVIOUR
     Route: 065
     Dates: start: 20081107
  7. RISPERIDONE. [Suspect]
     Active Substance: RISPERIDONE
     Indication: DISTURBANCE IN SOCIAL BEHAVIOUR
     Route: 065
     Dates: start: 20090113, end: 20090505
  8. RISPERIDONE. [Suspect]
     Active Substance: RISPERIDONE
     Indication: ATTENTION DEFICIT/HYPERACTIVITY DISORDER
     Route: 065
     Dates: start: 20120913, end: 20120914
  9. RISPERDAL [Suspect]
     Active Substance: RISPERIDONE
     Indication: AGITATION
     Route: 048
     Dates: start: 20120807, end: 20130620
  10. RISPERIDONE. [Suspect]
     Active Substance: RISPERIDONE
     Indication: ATTENTION DEFICIT/HYPERACTIVITY DISORDER
     Route: 065
     Dates: start: 20090113, end: 20090505
  11. RISPERDAL [Suspect]
     Active Substance: RISPERIDONE
     Indication: AGITATION
     Route: 048
     Dates: start: 20141120, end: 20150605
  12. RISPERDAL [Suspect]
     Active Substance: RISPERIDONE
     Indication: AGITATION
     Route: 048
     Dates: start: 20070820, end: 20090512
  13. RISPERDAL [Suspect]
     Active Substance: RISPERIDONE
     Indication: DISTURBANCE IN SOCIAL BEHAVIOUR
     Route: 048
  14. RISPERDAL [Suspect]
     Active Substance: RISPERIDONE
     Indication: ATTENTION DEFICIT/HYPERACTIVITY DISORDER
     Route: 048
     Dates: start: 20070820, end: 20090512
  15. RISPERIDONE. [Suspect]
     Active Substance: RISPERIDONE
     Indication: DISTURBANCE IN SOCIAL BEHAVIOUR
     Route: 065
     Dates: start: 20141215
  16. RISPERIDONE. [Suspect]
     Active Substance: RISPERIDONE
     Indication: DISTURBANCE IN SOCIAL BEHAVIOUR
     Route: 065
     Dates: start: 20141218
  17. RISPERIDONE. [Suspect]
     Active Substance: RISPERIDONE
     Indication: DISTURBANCE IN SOCIAL BEHAVIOUR
     Route: 065
     Dates: start: 20121009, end: 20130620
  18. RISPERDAL [Suspect]
     Active Substance: RISPERIDONE
     Indication: DISTURBANCE IN SOCIAL BEHAVIOUR
     Route: 048
     Dates: start: 20141120, end: 20150605
  19. RISPERDAL [Suspect]
     Active Substance: RISPERIDONE
     Indication: DISTURBANCE IN SOCIAL BEHAVIOUR
     Route: 048
     Dates: start: 20120807, end: 20130620
  20. RISPERIDONE. [Suspect]
     Active Substance: RISPERIDONE
     Indication: DISTURBANCE IN SOCIAL BEHAVIOUR
     Route: 065
     Dates: start: 20120807
  21. RISPERDAL [Suspect]
     Active Substance: RISPERIDONE
     Indication: AGITATION
     Route: 048
     Dates: start: 20101019
  22. RISPERDAL [Suspect]
     Active Substance: RISPERIDONE
     Indication: ATTENTION DEFICIT/HYPERACTIVITY DISORDER
     Route: 048
     Dates: start: 20101019
  23. RISPERIDONE. [Suspect]
     Active Substance: RISPERIDONE
     Indication: DISTURBANCE IN SOCIAL BEHAVIOUR
     Route: 065
     Dates: start: 20081114
  24. RISPERIDONE. [Suspect]
     Active Substance: RISPERIDONE
     Indication: DISTURBANCE IN SOCIAL BEHAVIOUR
     Route: 065
  25. RISPERIDONE. [Suspect]
     Active Substance: RISPERIDONE
     Indication: DISTURBANCE IN SOCIAL BEHAVIOUR
     Route: 065
     Dates: start: 20150605
  26. RISPERIDONE. [Suspect]
     Active Substance: RISPERIDONE
     Indication: ATTENTION DEFICIT/HYPERACTIVITY DISORDER
     Route: 065
     Dates: start: 20150102, end: 20150127
  27. RISPERIDONE. [Suspect]
     Active Substance: RISPERIDONE
     Indication: ATTENTION DEFICIT/HYPERACTIVITY DISORDER
     Route: 065
     Dates: start: 20081114
  28. RISPERIDONE. [Suspect]
     Active Substance: RISPERIDONE
     Indication: ATTENTION DEFICIT/HYPERACTIVITY DISORDER
     Route: 065
     Dates: start: 20141218
  29. RISPERDAL [Suspect]
     Active Substance: RISPERIDONE
     Indication: AGITATION
     Route: 048
  30. RISPERIDONE. [Suspect]
     Active Substance: RISPERIDONE
     Indication: DISTURBANCE IN SOCIAL BEHAVIOUR
     Route: 065
     Dates: start: 20150102, end: 20150127
  31. RISPERIDONE. [Suspect]
     Active Substance: RISPERIDONE
     Indication: DISTURBANCE IN SOCIAL BEHAVIOUR
     Route: 065
     Dates: start: 20120913, end: 20120914
  32. RISPERIDONE. [Suspect]
     Active Substance: RISPERIDONE
     Indication: ATTENTION DEFICIT/HYPERACTIVITY DISORDER
     Route: 065
     Dates: start: 20150605
  33. RISPERIDONE. [Suspect]
     Active Substance: RISPERIDONE
     Indication: ATTENTION DEFICIT/HYPERACTIVITY DISORDER
     Route: 065
     Dates: start: 20141215
  34. RISPERDAL [Suspect]
     Active Substance: RISPERIDONE
     Indication: DISTURBANCE IN SOCIAL BEHAVIOUR
     Route: 048
     Dates: start: 20101019
  35. RISPERDAL [Suspect]
     Active Substance: RISPERIDONE
     Indication: ATTENTION DEFICIT/HYPERACTIVITY DISORDER
     Route: 048
     Dates: start: 20120807, end: 20130620
  36. RISPERIDONE. [Suspect]
     Active Substance: RISPERIDONE
     Indication: ATTENTION DEFICIT/HYPERACTIVITY DISORDER
     Route: 065
     Dates: start: 20081107
  37. RISPERIDONE. [Suspect]
     Active Substance: RISPERIDONE
     Indication: ATTENTION DEFICIT/HYPERACTIVITY DISORDER
     Route: 065
     Dates: start: 20121009, end: 20130620
  38. RISPERIDONE. [Suspect]
     Active Substance: RISPERIDONE
     Indication: PRODUCT USED FOR UNKNOWN INDICATION
     Route: 048

REACTIONS (5)
  - Weight increased [Unknown]
  - Drug ineffective [Unknown]
  - Emotional distress [Unknown]
  - Gynaecomastia [Unknown]
  - Disturbance in social behaviour [Unknown]

NARRATIVE: CASE EVENT DATE: 20090505
